FAERS Safety Report 15011479 (Version 6)
Quarter: 2019Q2

REPORT INFORMATION
  Report Type: Report from Study
  Country: US (occurrence: US)
  Receive Date: 20180614
  Receipt Date: 20190402
  Transmission Date: 20190711
  Serious: Yes (Hospitalization)
  Sender: FDA-Public Use
  Company Number: US-AMGEN-USASP2018078637

PATIENT
  Age: 56 Year
  Sex: Female
  Weight: 107.94 kg

DRUGS (5)
  1. ETANERCEPT [Suspect]
     Active Substance: ETANERCEPT
     Indication: PSORIASIS
     Dosage: UNK UNK, Q2WK
     Route: 058
     Dates: start: 20131213, end: 20131213
  2. ETANERCEPT [Suspect]
     Active Substance: ETANERCEPT
     Dosage: UNK UNK, 2 TIMES/WK
     Route: 058
     Dates: start: 20131220, end: 20140207
  3. ETANERCEPT [Suspect]
     Active Substance: ETANERCEPT
     Dosage: UNK UNK, Q4WK (TWO SUBCUTANEOUS INJECTIONS)
     Route: 058
     Dates: start: 20140301, end: 20180119
  4. ETANERCEPT [Suspect]
     Active Substance: ETANERCEPT
     Dosage: UNK UNK, Q4WK
     Route: 058
  5. NORCO [Concomitant]
     Active Substance: ACETAMINOPHEN\HYDROCODONE BITARTRATE
     Indication: PAIN
     Dosage: UNK
     Dates: start: 20180122

REACTIONS (1)
  - Osteoarthritis [Recovering/Resolving]
